FAERS Safety Report 7064541-3 (Version None)
Quarter: 2010Q4

REPORT INFORMATION
  Report Type: 
  Country: None (occurrence: None)
  Receive Date: 20101027
  Receipt Date: 20101019
  Transmission Date: 20110411
  Serious: Yes (Other)
  Sender: FDA-Public Use
  Company Number: BR-SANOFI-AVENTIS-2010SA064308

PATIENT
  Age: 73 Year
  Sex: Female
  Weight: 62 kg

DRUGS (5)
  1. LANTUS [Suspect]
     Indication: TYPE 2 DIABETES MELLITUS
     Route: 058
  2. AUTOPEN 24 [Suspect]
  3. NOVORAPID [Concomitant]
     Indication: TYPE 2 DIABETES MELLITUS
     Route: 058
  4. SIMVASTATIN [Concomitant]
     Route: 048
  5. PURAN T4 [Concomitant]
     Indication: HYPOTHYROIDISM
     Route: 048

REACTIONS (8)
  - COGNITIVE DISORDER [None]
  - COMMUNICATION DISORDER [None]
  - CONFUSIONAL STATE [None]
  - DEMENTIA ALZHEIMER'S TYPE [None]
  - DIABETIC NEUROPATHY [None]
  - NERVOUSNESS [None]
  - PAIN IN EXTREMITY [None]
  - SOMNOLENCE [None]
